FAERS Safety Report 9036408 (Version 1)
Quarter: 2013Q1

REPORT INFORMATION
  Report Type: Spontaneous
  Country: US (occurrence: None)
  Receive Date: 20130123
  Receipt Date: 20130123
  Transmission Date: 20140127
  Serious: Yes (Other)
  Sender: FDA-Public Use
  Company Number: None

PATIENT
  Age: 66 Year
  Sex: Male
  Weight: 87.09 kg

DRUGS (2)
  1. XARELTO [Suspect]
     Indication: ATRIAL FIBRILLATION
     Dosage: 1 TABLET DAILY PO
     Route: 048
     Dates: start: 20121005, end: 20121125
  2. XARELTO [Suspect]
     Indication: CHEMOTHERAPY
     Dosage: 1 TABLET DAILY PO
     Route: 048
     Dates: start: 20121005, end: 20121125

REACTIONS (6)
  - Myalgia [None]
  - Arthralgia [None]
  - Arthralgia [None]
  - Muscular weakness [None]
  - Exercise lack of [None]
  - Pain in extremity [None]
